FAERS Safety Report 5939709-7 (Version None)
Quarter: 2008Q4

REPORT INFORMATION
  Report Type: 
  Country: None (occurrence: None)
  Receive Date: 20081031
  Receipt Date: 20081031
  Transmission Date: 20090506
  Serious: Yes (Disabling, Other)
  Sender: FDA-Public Use
  Company Number: None

PATIENT
  Age: 59 Year
  Sex: Female
  Weight: 86.1834 kg

DRUGS (12)
  1. ALBUTEROL [Suspect]
     Indication: ASTHMA
  2. FLOVENT [Concomitant]
  3. MAXAIR [Concomitant]
  4. SINGULAIR [Concomitant]
  5. VANCERIL [Concomitant]
  6. PULMICORT-100 [Concomitant]
  7. AEROBID [Concomitant]
  8. TILADE [Concomitant]
  9. COMBIVENT [Concomitant]
  10. LEVALBUTEROL HCL [Concomitant]
  11. FORADIL [Concomitant]
  12. ATROVENT [Concomitant]

REACTIONS (8)
  - BURNING SENSATION [None]
  - CHEST DISCOMFORT [None]
  - DYSPNOEA [None]
  - FEELING ABNORMAL [None]
  - HEADACHE [None]
  - MUSCLE SPASMS [None]
  - PARAESTHESIA [None]
  - WHEEZING [None]
